FAERS Safety Report 7429919-4 (Version None)
Quarter: 2011Q2

REPORT INFORMATION
  Report Type: 
  Country: None (occurrence: None)
  Receive Date: 20110421
  Receipt Date: 20110419
  Transmission Date: 20111010
  Serious: Yes (Hospitalization)
  Sender: FDA-Public Use
  Company Number: US-B.I. PHARMACEUTICALS,INC./RIDGEFIELD-2011-BP-08911BP

PATIENT
  Sex: Female

DRUGS (12)
  1. ACETAMINOPHEN [Concomitant]
     Dosage: PRN
  2. DIGOXIN [Concomitant]
     Indication: ATRIAL FIBRILLATION
  3. PRADAXA [Suspect]
     Indication: ATRIAL FIBRILLATION
     Dosage: ONE CAPSULE TWICE DAILY
     Route: 048
  4. AMOXICILLIN [Concomitant]
     Indication: DENTAL CARE
     Dosage: PRN
  5. IMODIUM [Concomitant]
     Indication: IRRITABLE BOWEL SYNDROME
     Dosage: PRN
  6. MULTIPLE VITAMIN [Concomitant]
  7. SYNTHROID [Concomitant]
     Dosage: 125 MG
  8. METAMUCIL-2 [Concomitant]
     Dosage: DAILY
  9. METOPROLOL [Concomitant]
     Dosage: 1 DAILY
  10. POT CHLORIDE [Concomitant]
     Dosage: 20 MG
  11. FUROSEMIDE [Concomitant]
     Dosage: 40 MG
  12. TYLENOL PM [Concomitant]
     Dosage: 2 AT BEDTIME

REACTIONS (2)
  - HAEMOGLOBIN DECREASED [None]
  - GASTROINTESTINAL HAEMORRHAGE [None]
